FAERS Safety Report 5093219-0 (Version None)
Quarter: 2006Q3

REPORT INFORMATION
  Report Type: 
  Country: None (occurrence: None)
  Receive Date: 20060828
  Receipt Date: 20060814
  Transmission Date: 20061208
  Serious: Yes (Disabling)
  Sender: FDA-Public Use
  Company Number: 228722

PATIENT
  Age: 54 Year
  Sex: Female
  Weight: 91.6 kg

DRUGS (1)
  1. RITUXIMAB (RITUXIMAB) CONC FOR SOLUTION FOR INFUSION [Suspect]
     Indication: RHEUMATOID ARTHRITIS
     Dosage: 1000 MG, DAYS 1+15, INTRAVENOUS
     Route: 042
     Dates: start: 20060503, end: 20060517

REACTIONS (1)
  - OSTEONECROSIS [None]
